FAERS Safety Report 13861114 (Version 1)
Quarter: 2017Q3

REPORT INFORMATION
  Report Type: Spontaneous
  Country: AT (occurrence: AT)
  Receive Date: 20170811
  Receipt Date: 20170811
  Transmission Date: 20171127
  Serious: Yes (Other)
  Sender: FDA-Public Use
  Company Number: AT-PFIZER INC-2017257097

PATIENT
  Age: 74 Year
  Sex: Female

DRUGS (5)
  1. SORTIS [Suspect]
     Active Substance: ATORVASTATIN
     Dosage: 20 MG, UNK
     Dates: start: 201702, end: 201705
  2. CANDESARTAN HCT [Concomitant]
     Active Substance: CANDESARTAN CILEXETIL\HYDROCHLOROTHIAZIDE
     Indication: HYPERTENSION
     Dosage: 1 DF (16/12.5MG), 1X/DAY
  3. SORTIS [Suspect]
     Active Substance: ATORVASTATIN
     Dosage: 30 MG, UNK
     Dates: start: 201701, end: 201702
  4. MOXONIBENE [Concomitant]
     Active Substance: MOXONIDINE
     Indication: HYPERTENSION
     Dosage: 0.4 MG, 1X/DAY
  5. CONCOR [Concomitant]
     Active Substance: BISOPROLOL FUMARATE
     Indication: HYPERTENSION
     Dosage: 5 MG, 1X/DAY

REACTIONS (1)
  - Alopecia [Not Recovered/Not Resolved]

NARRATIVE: CASE EVENT DATE: 2017
